FAERS Safety Report 6423640-7 (Version None)
Quarter: 2009Q4

REPORT INFORMATION
  Report Type: 
  Country: None (occurrence: None)
  Receive Date: 20091030
  Receipt Date: 20091030
  Transmission Date: 20100525
  Serious: No
  Sender: FDA-Public Use
  Company Number: None

PATIENT
  Age: 69 Year

DRUGS (2)
  1. LISINOPRIL [Suspect]
     Indication: HYPERTENSION
     Dosage: 10 MG EVERY DAY PO
     Route: 048
     Dates: start: 20060829, end: 20090814
  2. ESOMEPRAZOLE MAGNESIUM [Suspect]
     Indication: GASTROOESOPHAGEAL REFLUX DISEASE
     Dosage: 40 MG EVERY DAY PO
     Route: 048
     Dates: start: 20090729

REACTIONS (3)
  - ARTHROPOD BITE [None]
  - CHEST PAIN [None]
  - DRUG HYPERSENSITIVITY [None]
